FAERS Safety Report 8408204-8 (Version None)
Quarter: 2012Q2

REPORT INFORMATION
  Report Type: 
  Country: None (occurrence: None)
  Receive Date: 20120529
  Receipt Date: 20051004
  Transmission Date: 20120825
  Serious: Yes (Death, Other)
  Sender: FDA-Public Use
  Company Number: 02100-JPN-05-0488

PATIENT
  Age: 83 Year
  Sex: Male

DRUGS (7)
  1. RADICUT (EDARAVONE) INJECTION [Concomitant]
  2. GRAMALIL (TIAPRIDE HYDROCHLORIDE) [Concomitant]
  3. PLETAL [Suspect]
     Indication: CEREBRAL INFARCTION
     Dosage: 100 MG, BID, ORAL
     Route: 048
     Dates: start: 20050816, end: 20050822
  4. NITRAZEPAM [Concomitant]
  5. ALEVIATIN (PHENYTOIN) INJECTION [Concomitant]
  6. TEGRETOL [Concomitant]
  7. ZYRTEC [Concomitant]

REACTIONS (4)
  - HAEMORRHAGIC TRANSFORMATION STROKE [None]
  - BRAIN OEDEMA [None]
  - PNEUMONIA [None]
  - CONVULSION [None]
